FAERS Safety Report 13336433 (Version 1)
Quarter: 2017Q1

REPORT INFORMATION
  Report Type: Spontaneous
  Country: US (occurrence: US)
  Receive Date: 20170314
  Receipt Date: 20170314
  Transmission Date: 20170428
  Serious: No
  Sender: FDA-Public Use
  Company Number: US-JAZZ-2016-US-022216

PATIENT
  Sex: Female

DRUGS (28)
  1. XYREM [Suspect]
     Active Substance: SODIUM OXYBATE
     Dosage: 4.5 G, BID
     Route: 048
     Dates: start: 201502
  2. ETODOLAC. [Concomitant]
     Active Substance: ETODOLAC
  3. FLOMAX [Concomitant]
     Active Substance: TAMSULOSIN HYDROCHLORIDE
  4. XYREM [Suspect]
     Active Substance: SODIUM OXYBATE
     Indication: NARCOLEPSY
     Dosage: 2.25 G, BID
     Route: 048
     Dates: start: 201411, end: 2014
  5. LEXAPRO [Concomitant]
     Active Substance: ESCITALOPRAM OXALATE
  6. REQUIP E M [Concomitant]
  7. ELMIRON [Concomitant]
     Active Substance: PENTOSAN POLYSULFATE SODIUM
  8. CEFDINIR. [Concomitant]
     Active Substance: CEFDINIR
  9. ZITHROMAX [Concomitant]
     Active Substance: AZITHROMYCIN DIHYDRATE
  10. FLEXERIL [Concomitant]
     Active Substance: CYCLOBENZAPRINE HYDROCHLORIDE
  11. TRICOR                             /00090101/ [Concomitant]
     Active Substance: ADENOSINE
  12. NORCO [Concomitant]
     Active Substance: ACETAMINOPHEN\HYDROCODONE BITARTRATE
  13. PROVERA [Concomitant]
     Active Substance: MEDROXYPROGESTERONE ACETATE
  14. PROVIGIL [Concomitant]
     Active Substance: MODAFINIL
  15. FLOMAX [Concomitant]
     Active Substance: TAMSULOSIN HYDROCHLORIDE
  16. GABAPENTIN. [Concomitant]
     Active Substance: GABAPENTIN
  17. METHYLPHENIDATE. [Concomitant]
     Active Substance: METHYLPHENIDATE
  18. NYSTATIN                           /00982301/ [Concomitant]
  19. MYRBETRIQ [Concomitant]
     Active Substance: MIRABEGRON
  20. ADDERALL [Concomitant]
     Active Substance: AMPHETAMINE ASPARTATE\AMPHETAMINE SULFATE\DEXTROAMPHETAMINE SACCHARATE\DEXTROAMPHETAMINE SULFATE
  21. XYREM [Suspect]
     Active Substance: SODIUM OXYBATE
     Dosage: DOSE ADJUSTMENT
     Dates: start: 201411, end: 201501
  22. FENOFIBRATE. [Concomitant]
     Active Substance: FENOFIBRATE
  23. ROBAXIN [Concomitant]
     Active Substance: METHOCARBAMOL
  24. NUVIGIL [Concomitant]
     Active Substance: ARMODAFINIL
  25. BIAXIN [Concomitant]
     Active Substance: CLARITHROMYCIN
  26. MACROBID [Concomitant]
     Active Substance: NITROFURANTOIN\NITROFURANTOIN MONOHYDRATE
  27. PREDNISONE. [Concomitant]
     Active Substance: PREDNISONE
  28. DEXEDRINE [Concomitant]
     Active Substance: DEXTROAMPHETAMINE SULFATE

REACTIONS (1)
  - Drug screen positive [Unknown]
